FAERS Safety Report 15761304 (Version 1)
Quarter: 2018Q4

REPORT INFORMATION
  Report Type: Spontaneous
  Country: GB (occurrence: GB)
  Receive Date: 20181226
  Receipt Date: 20181226
  Transmission Date: 20190205
  Serious: Yes (Disabling, Other)
  Sender: FDA-Public Use
  Company Number: GB-PFIZER INC-2010013348

PATIENT
  Age: 13 Year
  Sex: Male
  Weight: 49 kg

DRUGS (2)
  1. ETANERCEPT [Concomitant]
     Active Substance: ETANERCEPT
     Dosage: 12.5 MG, TWICE WEEKLY
     Route: 058
     Dates: start: 20060901
  2. METHOTREXATE SODIUM. [Suspect]
     Active Substance: METHOTREXATE SODIUM
     Indication: ARTHRITIS
     Dosage: 12.5 MG, WEEKLY
     Route: 058
     Dates: start: 20050123, end: 20071030

REACTIONS (1)
  - Cardiovascular disorder [Not Recovered/Not Resolved]

NARRATIVE: CASE EVENT DATE: 20091217
